FAERS Safety Report 6390451-0 (Version None)
Quarter: 2009Q4

REPORT INFORMATION
  Report Type: 
  Country: None (occurrence: None)
  Receive Date: 20091005
  Receipt Date: 20091005
  Transmission Date: 20100525
  Serious: Yes (Hospitalization)
  Sender: FDA-Public Use
  Company Number: None

PATIENT
  Age: 86 Year
  Sex: Male

DRUGS (1)
  1. WARFARIN SODIUM [Suspect]
     Indication: ATRIAL FIBRILLATION
     Dosage: 5 MG PO
     Route: 048
     Dates: start: 20060214, end: 20090403

REACTIONS (7)
  - CONDITION AGGRAVATED [None]
  - DEMENTIA [None]
  - EPISTAXIS [None]
  - HAEMORRHAGE [None]
  - INTERNATIONAL NORMALISED RATIO INCREASED [None]
  - OSTEOARTHRITIS [None]
  - TREATMENT NONCOMPLIANCE [None]
